FAERS Safety Report 22025086 (Version 1)
Quarter: 2023Q1

REPORT INFORMATION
  Report Type: Spontaneous
  Country: US (occurrence: None)
  Receive Date: 20230223
  Receipt Date: 20230223
  Transmission Date: 20230418
  Serious: No
  Sender: FDA-Public Use
  Company Number: US-ROCHE-3095582

PATIENT
  Age: 77 Year
  Sex: Female

DRUGS (12)
  1. XOLAIR [Suspect]
     Active Substance: OMALIZUMAB
     Indication: Chronic spontaneous urticaria
     Route: 058
  2. SINGULAIR [Concomitant]
     Active Substance: MONTELUKAST SODIUM
  3. ALLEGRA [Concomitant]
     Active Substance: FEXOFENADINE HYDROCHLORIDE
  4. BENADRYL [Concomitant]
     Active Substance: DIPHENHYDRAMINE HYDROCHLORIDE
  5. XYZAL [Concomitant]
     Active Substance: LEVOCETIRIZINE DIHYDROCHLORIDE
  6. ZYRTEC [Concomitant]
     Active Substance: CETIRIZINE HYDROCHLORIDE
  7. VISTARIL [Concomitant]
     Active Substance: HYDROXYZINE PAMOATE
  8. ATARAX [Concomitant]
     Active Substance: HYDROXYZINE HYDROCHLORIDE
  9. DEXAMETHASONE [Concomitant]
     Active Substance: DEXAMETHASONE
  10. PREDNISONE [Concomitant]
     Active Substance: PREDNISONE
  11. IMURAN [Concomitant]
     Active Substance: AZATHIOPRINE
  12. LIGELIZUMAB [Concomitant]
     Active Substance: LIGELIZUMAB
     Indication: Chronic spontaneous urticaria

REACTIONS (2)
  - Pruritus [Unknown]
  - Skin laceration [Unknown]
